FAERS Safety Report 7903353-2 (Version None)
Quarter: 2011Q4

REPORT INFORMATION
  Report Type: 
  Country: None (occurrence: None)
  Receive Date: 20111107
  Receipt Date: 20111024
  Transmission Date: 20120403
  Serious: Yes (Other)
  Sender: FDA-Public Use
  Company Number: 2011P1009852

PATIENT
  Age: 45 Year
  Sex: Male

DRUGS (1)
  1. DEXAMETHASONE [Suspect]
     Indication: DEAFNESS NEUROSENSORY

REACTIONS (1)
  - TYMPANIC MEMBRANE PERFORATION [None]
